FAERS Safety Report 17206535 (Version 1)
Quarter: 2020Q1

REPORT INFORMATION
  Report Type: Spontaneous
  Country: US (occurrence: US)
  Receive Date: 20191226
  Receipt Date: 20191226
  Transmission Date: 20200409
  Serious: No
  Sender: FDA-Public Use
  Company Number: None

PATIENT
  Age: 43 Year
  Sex: Female
  Weight: 70.65 kg

DRUGS (10)
  1. COMPOUNDED THYROID [Concomitant]
  2. MAGNESIUM [Concomitant]
     Active Substance: MAGNESIUM
  3. CLONOPIN [Concomitant]
     Active Substance: CLONAZEPAM
  4. PHOSPHATIDYLSERINE [Concomitant]
  5. MULTIVITAMIN [Concomitant]
     Active Substance: VITAMINS
  6. PROGESTERONE AND DHEA [Concomitant]
  7. CALCIUM [Concomitant]
     Active Substance: CALCIUM
  8. MOTEGRITY [Suspect]
     Active Substance: PRUCALOPRIDE SUCCINATE
     Indication: CONSTIPATION
     Dosage: ?          QUANTITY:1 TABLET(S);?
     Route: 048
     Dates: start: 20191214, end: 20191224
  9. ZOLOFT [Concomitant]
     Active Substance: SERTRALINE HYDROCHLORIDE
  10. VITAMIN D [Concomitant]
     Active Substance: VITAMIN D NOS

REACTIONS (4)
  - Depression [None]
  - Anxiety [None]
  - Abnormal dreams [None]
  - Drug ineffective [None]

NARRATIVE: CASE EVENT DATE: 20191224
